FAERS Safety Report 9262770 (Version 2)
Quarter: 2013Q4

REPORT INFORMATION
  Report Type: Report from Study
  Country: IN (occurrence: IN)
  Receive Date: 20130430
  Receipt Date: 20131025
  Transmission Date: 20140711
  Serious: Yes (Hospitalization)
  Sender: FDA-Public Use
  Company Number: PHHY2013IN041051

PATIENT
  Age: 42 Year
  Sex: Male

DRUGS (21)
  1. SIMULECT [Suspect]
     Indication: RENAL TRANSPLANT
     Dosage: 1 VIAL
     Route: 042
     Dates: start: 20130319
  2. VINGRAF [Concomitant]
     Indication: RENAL TRANSPLANT
     Dosage: 2 MG, BID
  3. MYCOPHENOLATE MOFETIL [Concomitant]
     Indication: RENAL TRANSPLANT
     Dosage: UNK
  4. PREDNISOLONE [Concomitant]
     Indication: RENAL TRANSPLANT
     Dosage: UNK
  5. ACILOC (OMEPRAZOLE) [Concomitant]
     Dosage: 150 MG, BID
  6. MOXOVAS [Concomitant]
     Dosage: 0.2 MG ONCE DAILY
  7. OMNACORTIL [Concomitant]
     Dosage: 30 MG ONCE DAILY
  8. AUGMENTIN [Concomitant]
     Dosage: 625 MG, TID
  9. HUMAN INSULIN MIX [Concomitant]
     Dosage: BEFORE LUNCH MODERN DOSE
  10. INSULIN [Concomitant]
     Dosage: 30/70 BID 2-5 UNITS
     Route: 058
  11. ULTRACET [Concomitant]
     Dosage: SOS
  12. CANDID MOUTH [Concomitant]
     Dosage: TDS
  13. LISITRIL [Concomitant]
     Dosage: TDS
  14. GEMCAL [Concomitant]
     Dosage: 1 DF ONCE DAILY
  15. FOLVITE [Concomitant]
     Dosage: 1 DF ONCE DAILY
  16. IMAX FORTE [Concomitant]
     Dosage: 1 DF ONCE DAILY
  17. SOLUMEDROL [Concomitant]
     Dosage: 250 MG WITH 100 ML
  18. DEXONA [Concomitant]
     Dosage: 8 MG ONCE DAILY
     Route: 042
  19. DEPIN [Concomitant]
     Dosage: 5 MG SOS
     Route: 058
  20. SENSORCAINE [Concomitant]
     Dosage: 15 ML WITH 45 ML NS
     Route: 008
  21. TRAMADOL [Concomitant]
     Dosage: STAT IN 10CC NS
     Route: 042

REACTIONS (3)
  - Kidney transplant rejection [Unknown]
  - Renal impairment [Unknown]
  - Anaemia [Unknown]
